FAERS Safety Report 6860711-5 (Version None)
Quarter: 2010Q3

REPORT INFORMATION
  Report Type: 
  Country: None (occurrence: None)
  Receive Date: 20100720
  Receipt Date: 20100706
  Transmission Date: 20110219
  Serious: Yes (Other)
  Sender: FDA-Public Use
  Company Number: PHEH2009US15133

PATIENT
  Sex: Female
  Weight: 55 kg

DRUGS (14)
  1. ZOMETA [Suspect]
     Indication: OSTEOPOROSIS
     Dosage: 4 MG ONCE A MONTH
     Route: 042
  2. XELODA [Concomitant]
  3. FEMARA [Concomitant]
     Indication: BREAST CANCER
     Dosage: 2.5 MG
  4. TAMOXIFEN [Concomitant]
     Indication: BREAST CANCER
  5. AMOXICILLIN [Concomitant]
  6. NAVELBINE [Concomitant]
     Dosage: 3 MG
  7. AVASTIN [Concomitant]
     Dosage: 597 MG EVERY 10 DAYS
  8. BEVACIZUMAB [Concomitant]
     Dosage: 545 MG
     Route: 042
  9. VINORELBINE [Concomitant]
     Route: 042
  10. FAMOTIDINE [Concomitant]
     Dosage: 20 MG
     Route: 042
  11. GRANISETRON HCL [Concomitant]
     Dosage: 0.8 MCG
     Route: 042
  12. FLUVACCIN [Concomitant]
  13. KYTRIL [Concomitant]
     Dosage: 1 MG
     Route: 042
  14. DECADRON [Concomitant]
     Dosage: 10 MG
     Route: 042

REACTIONS (40)
  - ANXIETY [None]
  - ASPARTATE AMINOTRANSFERASE INCREASED [None]
  - ASTHENIA [None]
  - BACK PAIN [None]
  - BIOPSY BONE [None]
  - BLOOD CHOLESTEROL INCREASED [None]
  - BLOOD GLUCOSE INCREASED [None]
  - BLOOD LACTATE DEHYDROGENASE INCREASED [None]
  - BONE DISORDER [None]
  - BONE FRAGMENTATION [None]
  - BONE LESION [None]
  - BREAST CANCER METASTATIC [None]
  - CARCINOEMBRYONIC ANTIGEN INCREASED [None]
  - CENTRAL VENOUS CATHETERISATION [None]
  - DECREASED INTEREST [None]
  - DILATATION ATRIAL [None]
  - DISEASE PROGRESSION [None]
  - DUODENITIS [None]
  - GASTRITIS [None]
  - GENERAL PHYSICAL HEALTH DETERIORATION [None]
  - GINGIVAL BLEEDING [None]
  - HEPATIC CYST [None]
  - HIATUS HERNIA [None]
  - KYPHOSIS [None]
  - MASTECTOMY [None]
  - MEAN CELL VOLUME INCREASED [None]
  - METASTASES TO BONE [None]
  - MONOCYTE COUNT DECREASED [None]
  - OESOPHAGITIS [None]
  - ORAL TORUS [None]
  - OSTEONECROSIS OF JAW [None]
  - PAIN [None]
  - PHARYNGITIS [None]
  - RED BLOOD CELL COUNT DECREASED [None]
  - RED CELL DISTRIBUTION WIDTH INCREASED [None]
  - SCOLIOSIS [None]
  - SINUSITIS [None]
  - TOOTH DISORDER [None]
  - TUMOUR MARKER INCREASED [None]
  - VENOUS OCCLUSION [None]
